FAERS Safety Report 5251840-0 (Version None)
Quarter: 2007Q1

REPORT INFORMATION
  Report Type: 
  Country: None (occurrence: None)
  Receive Date: 20070228
  Receipt Date: 20070215
  Transmission Date: 20070707
  Serious: Yes (Death, Hospitalization)
  Sender: FDA-Public Use
  Company Number: JP-ELI_LILLY_AND_COMPANY-JP200608005147

PATIENT
  Age: 87 Year
  Sex: Female
  Weight: 46 kg

DRUGS (9)
  1. RALOXIFENE HCL [Suspect]
     Indication: OSTEOPOROSIS POSTMENOPAUSAL
     Dosage: 60 MG, DAILY (1/D)
     Route: 048
     Dates: start: 20041101
  2. ELCITONIN [Concomitant]
     Indication: OSTEOPOROSIS POSTMENOPAUSAL
     Dosage: 20 U, WEEKLY (1/W)
     Route: 030
  3. GASMOTIN [Concomitant]
     Indication: GASTRIC ULCER
     Dosage: 15 MG, DAILY (1/D)
     Route: 048
     Dates: end: 20050501
  4. GASMOTIN [Concomitant]
     Dosage: 10 MG, DAILY (1/D)
     Route: 048
     Dates: start: 20050502
  5. CYLOCK [Concomitant]
     Indication: GASTRIC ULCER
     Dosage: 600 MG, DAILY (1/D)
     Route: 048
     Dates: end: 20050112
  6. CEREKINON [Concomitant]
     Indication: GASTRIC ULCER
     Dosage: 300 MG, DAILY (1/D)
     Route: 048
     Dates: end: 20050112
  7. YAKUBAN                                 /JPN/ [Concomitant]
     Indication: BACK PAIN
     Route: 062
  8. ALTAT [Concomitant]
     Indication: GASTRITIS
     Dosage: 150 MG, DAILY (1/D)
     Route: 048
     Dates: start: 20050502
  9. MOBIC [Concomitant]
     Indication: BACK PAIN
     Dosage: 10 MG, DAILY (1/D)
     Route: 048
     Dates: start: 20050502

REACTIONS (6)
  - FALL [None]
  - FEMORAL NECK FRACTURE [None]
  - GALLBLADDER CANCER [None]
  - GASTROINTESTINAL DISORDER [None]
  - METASTASES TO LYMPH NODES [None]
  - ORAL INTAKE REDUCED [None]
